FAERS Safety Report 4930181-2 (Version None)
Quarter: 2006Q1

REPORT INFORMATION
  Report Type: 
  Country: None (occurrence: None)
  Receive Date: 20060228
  Receipt Date: 20060203
  Transmission Date: 20060701
  Serious: Yes (Other)
  Sender: FDA-Public Use
  Company Number: SE200602000965

PATIENT
  Age: 55 Year
  Sex: Male

DRUGS (1)
  1. CIALIS [Suspect]
     Indication: ERECTILE DYSFUNCTION
     Dosage: ORAL
     Route: 048
     Dates: start: 20050801

REACTIONS (3)
  - ATRIAL FIBRILLATION [None]
  - SUPRAVENTRICULAR EXTRASYSTOLES [None]
  - TRANSIENT ISCHAEMIC ATTACK [None]
